FAERS Safety Report 4490858-2 (Version None)
Quarter: 2004Q4

REPORT INFORMATION
  Report Type: 
  Country: None (occurrence: None)
  Receive Date: 20041102
  Receipt Date: 20040924
  Transmission Date: 20050328
  Serious: Yes (Other)
  Sender: FDA-Public Use
  Company Number: PHBS2004BE12787

PATIENT
  Age: 77 Year
  Sex: Female

DRUGS (4)
  1. DIOVAN [Suspect]
     Indication: CARDIOVASCULAR DISORDER
     Route: 048
     Dates: end: 20040701
  2. DAFLON [Concomitant]
  3. ALDACTAZINE [Concomitant]
  4. PLAQUENIL [Concomitant]

REACTIONS (9)
  - ALOPECIA [None]
  - DRUG INTOLERANCE [None]
  - LICHEN PLANUS [None]
  - POLYMORPHIC LIGHT ERUPTION [None]
  - PRURITUS [None]
  - RASH SCALY [None]
  - SKIN LESION [None]
  - SYSTEMIC LUPUS ERYTHEMATOSUS [None]
  - TOXIC SKIN ERUPTION [None]
